FAERS Safety Report 5652535-1 (Version None)
Quarter: 2008Q1

REPORT INFORMATION
  Report Type: 
  Country: None (occurrence: None)
  Receive Date: 20080305
  Receipt Date: 20080305
  Transmission Date: 20080703
  Serious: Yes (Life-Threatening, Hospitalization, Disabling)
  Sender: FDA-Public Use
  Company Number: None

PATIENT
  Age: 49 Year
  Sex: Male
  Weight: 81.6475 kg

DRUGS (1)
  1. CHANTIX [Suspect]
     Indication: SMOKING CESSATION THERAPY
     Dosage: BEGINNERS PACKET  MONTHLY PACKET
     Dates: start: 20070901, end: 20071015

REACTIONS (2)
  - IMPAIRED WORK ABILITY [None]
  - THROMBOTIC STROKE [None]
